FAERS Safety Report 11103039 (Version 1)
Quarter: 2015Q2

REPORT INFORMATION
  Report Type: Spontaneous
  Country: FR (occurrence: FR)
  Receive Date: 20150511
  Receipt Date: 20150511
  Transmission Date: 20150821
  Serious: Yes (Hospitalization)
  Sender: FDA-Public Use
  Company Number: FR-PFIZER INC-2015158965

PATIENT
  Age: 81 Year
  Sex: Female

DRUGS (14)
  1. FLECAINE [Concomitant]
     Active Substance: FLECAINIDE
     Dosage: UNK
     Dates: end: 20150311
  2. RISPERDAL [Concomitant]
     Active Substance: RISPERIDONE
     Dosage: UNK
  3. EBIXA [Concomitant]
     Active Substance: MEMANTINE HYDROCHLORIDE
     Dosage: UNK
  4. FLUINDIONE [Concomitant]
     Active Substance: FLUINDIONE
     Dosage: UNK
  5. HYPNOVEL [Concomitant]
     Active Substance: MIDAZOLAM\MIDAZOLAM HYDROCHLORIDE
     Dosage: UNK
  6. AMLOR [Concomitant]
     Active Substance: AMLODIPINE BESYLATE
     Dosage: UNK
  7. SERESTA [Concomitant]
     Active Substance: OXAZEPAM
     Dosage: UNK
  8. TEMERIT [Concomitant]
     Active Substance: NEBIVOLOL
     Dosage: UNK
  9. LEVOTHYROX [Concomitant]
     Active Substance: LEVOTHYROXINE
     Dosage: UNK
  10. CORDARONE [Suspect]
     Active Substance: AMIODARONE HYDROCHLORIDE
     Dosage: 1 DF, UNK
     Route: 048
     Dates: start: 20150311, end: 20150331
  11. GALANTAMINE [Concomitant]
     Active Substance: GALANTAMINE
     Dosage: UNK
  12. ZOLPIDEM TARTRATE. [Concomitant]
     Active Substance: ZOLPIDEM TARTRATE
     Dosage: UNK
  13. LASILIX [Concomitant]
     Active Substance: FUROSEMIDE
     Dosage: UNK
  14. CONTRAMAL [Concomitant]
     Active Substance: TRAMADOL HYDROCHLORIDE
     Dosage: UNK

REACTIONS (2)
  - Cholestasis [Unknown]
  - Cell death [Unknown]

NARRATIVE: CASE EVENT DATE: 20150330
